FAERS Safety Report 10510739 (Version 1)
Quarter: 2014Q4

REPORT INFORMATION
  Report Type: Other
  Country: DE (occurrence: DE)
  Receive Date: 20141010
  Receipt Date: 20141010
  Transmission Date: 20150528
  Serious: Yes (Death)
  Sender: FDA-Public Use
  Company Number: DE-LUPIN PHARMACEUTICALS INC.-E2B_00002496

PATIENT
  Sex: Female

DRUGS (10)
  1. ATOSIL [Interacting]
     Active Substance: PROMETHAZINE HYDROCHLORIDE
     Indication: DEPRESSION
     Route: 065
     Dates: start: 20130403, end: 20130515
  2. L-THYROXIN [Interacting]
     Active Substance: LEVOTHYROXINE SODIUM
     Indication: THYROID DISORDER
     Route: 065
     Dates: start: 20130403, end: 20130515
  3. ZOPICLONE [Suspect]
     Active Substance: ZOPICLONE
     Route: 048
     Dates: start: 20130513, end: 20130513
  4. VALDOXAN [Interacting]
     Active Substance: AGOMELATINE
     Indication: DEPRESSION
     Route: 065
     Dates: start: 20130403, end: 20130515
  5. OMEPRAZOL [Interacting]
     Active Substance: OMEPRAZOLE
     Indication: PRODUCT USED FOR UNKNOWN INDICATION
     Route: 065
     Dates: start: 20130403, end: 20130515
  6. OLANZAPINE. [Interacting]
     Active Substance: OLANZAPINE
     Indication: DEPRESSION
     Route: 065
     Dates: start: 20130403, end: 20130515
  7. LYRICA [Interacting]
     Active Substance: PREGABALIN
     Indication: DEPRESSION
     Route: 065
     Dates: start: 20130403, end: 20130515
  8. SERTRALINE [Interacting]
     Active Substance: SERTRALINE HYDROCHLORIDE
     Indication: DEPRESSION
     Route: 065
     Dates: start: 20130403, end: 20130515
  9. ZOPICLONE [Suspect]
     Active Substance: ZOPICLONE
     Indication: SLEEP DISORDER
     Route: 065
     Dates: start: 20130403, end: 20130515
  10. DOXEPIN 20 [Interacting]
     Active Substance: DOXEPIN
     Indication: DEPRESSION
     Route: 065
     Dates: start: 20130403, end: 20130515

REACTIONS (1)
  - Completed suicide [Fatal]

NARRATIVE: CASE EVENT DATE: 20130516
